FAERS Safety Report 9506593 (Version 1)
Quarter: 2013Q3

REPORT INFORMATION
  Report Type: Spontaneous
  Country: US (occurrence: None)
  Receive Date: 20130905
  Receipt Date: 20130905
  Transmission Date: 20140515
  Serious: Yes (Other)
  Sender: FDA-Public Use
  Company Number: None

PATIENT
  Age: 80 Year
  Sex: Female

DRUGS (1)
  1. FORTEO [Suspect]
     Dosage: 600 MCG DAILY SUB Q
     Route: 058
     Dates: start: 20130315, end: 20130824

REACTIONS (4)
  - Abdominal discomfort [None]
  - Vision blurred [None]
  - Blood pressure decreased [None]
  - Feeling abnormal [None]
